FAERS Safety Report 6120621-8 (Version None)
Quarter: 2009Q1

REPORT INFORMATION
  Report Type: 
  Country: None (occurrence: None)
  Receive Date: 20090312
  Receipt Date: 20090312
  Transmission Date: 20090719
  Serious: Yes (Hospitalization)
  Sender: FDA-Public Use
  Company Number: None

PATIENT
  Age: 76 Year
  Sex: Male
  Weight: 71.6683 kg

DRUGS (13)
  1. GEMCITABINE [Suspect]
     Indication: PANCREATIC CARCINOMA
     Route: 042
     Dates: start: 20081208
  2. TARCEVA [Suspect]
     Indication: PANCREATIC CARCINOMA
     Route: 048
     Dates: start: 20081208
  3. RADIATION 40CGY BID DAY 1,3,8,9 [Suspect]
  4. ASPIRIN [Concomitant]
  5. METOPROLOL TARTRATE [Concomitant]
  6. FLOMAX [Concomitant]
  7. ALPHAGAN [Concomitant]
  8. COSOPT [Concomitant]
  9. TRAVASTAN [Concomitant]
  10. REMERON [Concomitant]
  11. REGLAN [Concomitant]
  12. COLACE [Concomitant]
  13. ZOFRAN [Concomitant]

REACTIONS (6)
  - ALANINE AMINOTRANSFERASE INCREASED [None]
  - ASPARTATE AMINOTRANSFERASE INCREASED [None]
  - BLOOD ALKALINE PHOSPHATASE INCREASED [None]
  - BLOOD BILIRUBIN INCREASED [None]
  - CHOLANGITIS [None]
  - PYREXIA [None]
